FAERS Safety Report 12166931 (Version 2)
Quarter: 2016Q1

REPORT INFORMATION
  Report Type: Spontaneous
  Country: US (occurrence: US)
  Receive Date: 20160310
  Receipt Date: 20160315
  Transmission Date: 20160526
  Serious: No
  Sender: FDA-Public Use
  Company Number: US-009507513-1603USA002534

PATIENT

DRUGS (1)
  1. NEXPLANON [Suspect]
     Active Substance: ETONOGESTREL
     Dosage: 1 ROD INTO THE PATIENT^S ARM
     Route: 059
     Dates: start: 20160229

REACTIONS (4)
  - Device difficult to use [Unknown]
  - No adverse event [Unknown]
  - Device kink [Unknown]
  - Product quality issue [Unknown]

NARRATIVE: CASE EVENT DATE: 20160229
